FAERS Safety Report 9840357 (Version 3)
Quarter: 2014Q3

REPORT INFORMATION
  Report Type: Report from Study
  Country: HU (occurrence: HU)
  Receive Date: 20140124
  Receipt Date: 20140904
  Transmission Date: 20150326
  Serious: Yes (Hospitalization)
  Sender: FDA-Public Use
  Company Number: HU-JNJFOC-20140108589

PATIENT
  Age: 44 Year
  Sex: Female
  Weight: 83 kg

DRUGS (1)
  1. XEPLION [Suspect]
     Active Substance: PALIPERIDONE PALMITATE
     Indication: SCHIZOPHRENIA
     Route: 030
     Dates: start: 20130521

REACTIONS (6)
  - Poor personal hygiene [Unknown]
  - Depression [Unknown]
  - Anxiety [Unknown]
  - Galactorrhoea [Not Recovered/Not Resolved]
  - Condition aggravated [Unknown]
  - Decreased activity [Unknown]

NARRATIVE: CASE EVENT DATE: 20130813
